FAERS Safety Report 5064237-3 (Version None)
Quarter: 2006Q3

REPORT INFORMATION
  Report Type: 
  Country: None (occurrence: None)
  Receive Date: 20060725
  Receipt Date: 20060725
  Transmission Date: 20061208
  Serious: Yes (Other)
  Sender: FDA-Public Use
  Company Number: None

PATIENT
  Age: 46 Year
  Sex: Male

DRUGS (10)
  1. SILDENAFIL CITRATE [Suspect]
     Indication: ERECTILE DYSFUNCTION
     Dosage: 100MG  PRN PO
     Route: 048
     Dates: start: 20020228, end: 20040511
  2. VARDENAFIL [Suspect]
     Indication: ERECTILE DYSFUNCTION
     Dosage: PRN PO
     Route: 048
  3. PLAVIX [Concomitant]
  4. METFORMIN [Concomitant]
  5. FUROSEMIDE [Concomitant]
  6. RAMIPRIL [Concomitant]
  7. CARVEDILOL [Concomitant]
  8. GLIPIZIDE [Concomitant]
  9. FELODIPINE [Concomitant]
  10. ASPIRIN [Concomitant]

REACTIONS (2)
  - DRUG EFFECT DECREASED [None]
  - HEADACHE [None]
